FAERS Safety Report 5407217-8 (Version None)
Quarter: 2007Q3

REPORT INFORMATION
  Report Type: 
  Country: None (occurrence: None)
  Receive Date: 20070807
  Receipt Date: 20070801
  Transmission Date: 20080115
  Serious: Yes (Death, Hospitalization)
  Sender: FDA-Public Use
  Company Number: A0667635A

PATIENT
  Age: 64 Year
  Sex: Male

DRUGS (4)
  1. COREG [Suspect]
     Indication: HYPERTENSION
     Dosage: 12.5MG PER DAY
     Route: 048
     Dates: start: 20040101, end: 20070101
  2. ZETIA [Concomitant]
  3. LIPITOR [Concomitant]
  4. PLAVIX [Concomitant]

REACTIONS (6)
  - ADVERSE EVENT [None]
  - AORTIC STENOSIS [None]
  - CARDIAC FAILURE [None]
  - DEATH [None]
  - HYPOTENSION [None]
  - PNEUMONIA [None]
